FAERS Safety Report 14584217 (Version 1)
Quarter: 2018Q1

REPORT INFORMATION
  Report Type: Spontaneous
  Country: US (occurrence: US)
  Receive Date: 20180228
  Receipt Date: 20180228
  Transmission Date: 20180509
  Serious: Yes (Hospitalization)
  Sender: FDA-Public Use
  Company Number: US-IRONWOOD PHARMACEUTICALS, INC.-IRWD2018000029

PATIENT
  Age: 61 Year
  Sex: Male

DRUGS (6)
  1. ZURAMPIC [Suspect]
     Active Substance: LESINURAD
     Indication: GOUT
     Dosage: 200 MG, QD
     Route: 048
  2. GENTAMYCIN-MP [Suspect]
     Active Substance: GENTAMICIN SULFATE
     Indication: CELLULITIS
     Dosage: UNK
     Route: 042
  3. PREDNISONE. [Concomitant]
     Active Substance: PREDNISONE
     Indication: GOUT
     Dosage: UNK
  4. LISINOPRIL. [Concomitant]
     Active Substance: LISINOPRIL
     Indication: HYPERTENSION
     Dosage: UNK
  5. ULORIC [Concomitant]
     Active Substance: FEBUXOSTAT
     Indication: GOUT
     Dosage: UNK
  6. CARVEDILOL. [Concomitant]
     Active Substance: CARVEDILOL
     Indication: HYPERTENSION
     Dosage: UNK

REACTIONS (2)
  - Renal injury [Recovered/Resolved]
  - Gout [Unknown]
